FAERS Safety Report 12153791 (Version 1)
Quarter: 2016Q1

REPORT INFORMATION
  Report Type: Spontaneous
  Country: CZ (occurrence: CZ)
  Receive Date: 20160307
  Receipt Date: 20160307
  Transmission Date: 20160526
  Serious: Yes (Hospitalization)
  Sender: FDA-Public Use
  Company Number: CZ-009507513-1603CZE002053

PATIENT
  Age: 74 Year
  Sex: Male
  Weight: 101 kg

DRUGS (16)
  1. GODASAL [Concomitant]
     Active Substance: ASPIRIN\GLYCINE
     Dosage: 100 (UNIT NOT PROVIDED), QD
  2. EMANERA [Concomitant]
     Dosage: 40 MG, BID
  3. HYDROCHLOROTHIAZIDE. [Concomitant]
     Active Substance: HYDROCHLOROTHIAZIDE
     Dosage: 25 MG + 1/2 TABLET, QD
  4. FURON [Concomitant]
     Active Substance: FUROSEMIDE
     Dosage: 40 MG + 1/2 TABLET, QD
  5. LEVEMIR [Concomitant]
     Active Substance: INSULIN DETEMIR
     Dosage: DOSE DEREASED
     Dates: start: 20150921
  6. CLEXANE (ENOXAPARIN SODIUM) [Concomitant]
     Active Substance: ENOXAPARIN SODIUM
     Dosage: 0.6 ML, BID
  7. JANUVIA [Suspect]
     Active Substance: SITAGLIPTIN PHOSPHATE
     Indication: DIABETES MELLITUS
     Dosage: 100 MG, QD
     Route: 048
     Dates: start: 20150902, end: 20151008
  8. ACTRAPID [Concomitant]
     Active Substance: INSULIN HUMAN
     Dosage: 100/ML, 26-29-32 UNITS
  9. LEVEMIR [Concomitant]
     Active Substance: INSULIN DETEMIR
     Dosage: 100/ML, 35 UNITS IN THE EVENING
  10. CLOPIDOGREL [Concomitant]
     Active Substance: CLOPIDOGREL BISULFATE
     Dosage: 75 MG, QD
  11. BETALOC [Concomitant]
     Active Substance: METOPROLOL TARTRATE
     Dosage: 50 MG, 1/2
  12. PREDUCTAL [Concomitant]
     Active Substance: TRIMETAZIDINE DIHYDROCHLORIDE
     Dosage: 35 MG, QD
  13. SORBIFER (FERROUS SULFATE) [Concomitant]
     Dosage: 100 MG, QD
  14. SORTIS [Concomitant]
     Active Substance: ATORVASTATIN
     Dosage: 80 MG, QD
  15. VEROSPIRON [Concomitant]
     Active Substance: SPIRONOLACTONE
     Dosage: 25 MG, QD
  16. PRESTANCE [Concomitant]
     Active Substance: AMLODIPINE BESYLATE\PERINDOPRIL ARGININE
     Dosage: 5MG/5MG, QD

REACTIONS (3)
  - Hypertension [Recovered/Resolved with Sequelae]
  - Pulmonary oedema [Recovered/Resolved with Sequelae]
  - Acute coronary syndrome [Recovered/Resolved with Sequelae]

NARRATIVE: CASE EVENT DATE: 20151008
